FAERS Safety Report 16585569 (Version 1)
Quarter: 2019Q3

REPORT INFORMATION
  Report Type: Spontaneous
  Country: FR (occurrence: FR)
  Receive Date: 20190717
  Receipt Date: 20190717
  Transmission Date: 20191004
  Serious: Yes (Life-Threatening)
  Sender: FDA-Public Use
  Company Number: FR-ELI_LILLY_AND_COMPANY-FR201907006991

PATIENT
  Age: 19 Year
  Sex: Male
  Weight: 66 kg

DRUGS (5)
  1. NOZINAN [LEVOMEPROMAZINE EMBONATE] [Suspect]
     Active Substance: LEVOMEPROMAZINE EMBONATE
     Indication: SCHIZOPHRENIA
     Route: 048
     Dates: start: 201905, end: 20190615
  2. VALIUM [Suspect]
     Active Substance: DIAZEPAM
     Indication: SCHIZOPHRENIA
     Dosage: UNK, UNKNOWN
     Route: 048
     Dates: start: 201905, end: 20190615
  3. MIDAZOLAM [Suspect]
     Active Substance: MIDAZOLAM HYDROCHLORIDE
     Indication: SCHIZOPHRENIA
     Dosage: UNK UNK, UNKNOWN
     Route: 041
     Dates: start: 20190615, end: 20190622
  4. OLANZAPINE. [Suspect]
     Active Substance: OLANZAPINE
     Indication: SCHIZOPHRENIA
     Dosage: 30 MG, UNKNOWN
     Route: 048
     Dates: start: 20190512, end: 20190615
  5. CLOPIXOL [ZUCLOPENTHIXOL HYDROCHLORIDE] [Suspect]
     Active Substance: ZUCLOPENTHIXOL HYDROCHLORIDE
     Indication: SCHIZOPHRENIA
     Dosage: UNK UNK, UNKNOWN
     Route: 048
     Dates: start: 20190522, end: 20190615

REACTIONS (2)
  - Overdose [Unknown]
  - Colitis ischaemic [Recovered/Resolved with Sequelae]

NARRATIVE: CASE EVENT DATE: 20190615
